FAERS Safety Report 13757207 (Version 1)
Quarter: 2017Q3

REPORT INFORMATION
  Report Type: Spontaneous
  Country: US (occurrence: US)
  Receive Date: 20170714
  Receipt Date: 20170714
  Transmission Date: 20171127
  Serious: No
  Sender: FDA-Public Use
  Company Number: None

PATIENT
  Age: 61 Year
  Sex: Male
  Weight: 99 kg

DRUGS (4)
  1. FISH OIL [Concomitant]
     Active Substance: FISH OIL
  2. HYDROCODONE [Concomitant]
     Active Substance: HYDROCODONE
  3. KENALOG-40 [Suspect]
     Active Substance: TRIAMCINOLONE ACETONIDE
     Indication: NECK PAIN
     Route: 030
     Dates: start: 20170712, end: 20170712
  4. KENALOG-40 [Suspect]
     Active Substance: TRIAMCINOLONE ACETONIDE
     Indication: PAIN IN EXTREMITY
     Route: 030
     Dates: start: 20170712, end: 20170712

REACTIONS (4)
  - Musculoskeletal chest pain [None]
  - Injection site reaction [None]
  - Injection site pain [None]
  - Back pain [None]

NARRATIVE: CASE EVENT DATE: 20170713
